FAERS Safety Report 11803268 (Version 3)
Quarter: 2016Q4

REPORT INFORMATION
  Report Type: Report from Study
  Country: US (occurrence: US)
  Receive Date: 20151204
  Receipt Date: 20161208
  Transmission Date: 20170206
  Serious: Yes (Other)
  Sender: FDA-Public Use
  Company Number: PHEH2015US025260

PATIENT
  Age: 33 Year
  Sex: Female
  Weight: 104.31 kg

DRUGS (1)
  1. GILENYA [Suspect]
     Active Substance: FINGOLIMOD HYDROCHLORIDE
     Indication: MULTIPLE SCLEROSIS
     Dosage: 0.5 MG, QD
     Route: 048
     Dates: start: 20150504

REACTIONS (32)
  - Stress [Unknown]
  - Vitamin D deficiency [Recovering/Resolving]
  - Lymphocyte count decreased [Unknown]
  - Pain in extremity [Not Recovered/Not Resolved]
  - Pain [Unknown]
  - Head discomfort [Unknown]
  - Dizziness [Unknown]
  - Liver function test increased [Not Recovered/Not Resolved]
  - Muscle tightness [Unknown]
  - Movement disorder [Unknown]
  - Eye movement disorder [Unknown]
  - Fatigue [Not Recovered/Not Resolved]
  - Alopecia [Not Recovered/Not Resolved]
  - Headache [Unknown]
  - Muscle spasms [Unknown]
  - Hoffmann^s sign [Recovered/Resolved]
  - Weight increased [Unknown]
  - Abdominal discomfort [Recovering/Resolving]
  - Blood cholesterol increased [Unknown]
  - Neurogenic bladder [Recovering/Resolving]
  - Hyperlipidaemia [Unknown]
  - Memory impairment [Not Recovered/Not Resolved]
  - Constipation [Unknown]
  - Peroneal nerve palsy [Unknown]
  - Gait spastic [Unknown]
  - Low density lipoprotein increased [Unknown]
  - Gait disturbance [Unknown]
  - Sensory loss [Unknown]
  - Bruxism [Unknown]
  - Insomnia [Recovering/Resolving]
  - Visual acuity reduced [Not Recovered/Not Resolved]
  - Decreased appetite [Unknown]

NARRATIVE: CASE EVENT DATE: 201509
